FAERS Safety Report 26097346 (Version 1)
Quarter: 2025Q4

REPORT INFORMATION
  Report Type: Spontaneous
  Country: US (occurrence: US)
  Receive Date: 20251127
  Receipt Date: 20251127
  Transmission Date: 20260118
  Serious: Yes (Other)
  Sender: GLAXOSMITHKLINE
  Company Number: US-GSK-US2025150982

PATIENT
  Sex: Female

DRUGS (1)
  1. VENTOLIN HFA [Suspect]
     Active Substance: ALBUTEROL SULFATE
     Indication: Restrictive pulmonary disease
     Dosage: 2 PUFFS IN THE AM BEFORE EXERCISE (USING FOR A COUPLE OF YEARS)

REACTIONS (4)
  - Pancreatic carcinoma [Unknown]
  - Cough [Unknown]
  - Wrong technique in device usage process [Unknown]
  - Product use in unapproved indication [Unknown]
